FAERS Safety Report 12304555 (Version 1)
Quarter: 2016Q2

REPORT INFORMATION
  Report Type: Other
  Country: ZA (occurrence: ZA)
  Receive Date: 20160426
  Receipt Date: 20160426
  Transmission Date: 20160815
  Serious: Yes (Other)
  Sender: FDA-Public Use
  Company Number: ZA-JUBILANT GENERICS LIMITED-1051004

PATIENT
  Age: 6 Year
  Sex: Female
  Weight: 20.46 kg

DRUGS (8)
  1. TERIZIDONE [Concomitant]
     Active Substance: TERIZIDONE
  2. ETHAMBUTOL [Concomitant]
     Active Substance: ETHAMBUTOL HYDROCHLORIDE
  3. PYRAZINAMIDE. [Concomitant]
     Active Substance: PYRAZINAMIDE
  4. AMIKACIN SULFATE. [Concomitant]
     Active Substance: AMIKACIN SULFATE
  5. PYRIDOXINE [Concomitant]
     Active Substance: PYRIDOXINE
  6. ISONIAZID. [Concomitant]
     Active Substance: ISONIAZID
  7. LEVOFLOXACIN. [Suspect]
     Active Substance: LEVOFLOXACIN
  8. ETHIONAMIDE [Concomitant]
     Active Substance: ETHIONAMIDE

REACTIONS (2)
  - Papilloedema [Recovered/Resolved]
  - Intracranial pressure increased [Recovered/Resolved]

NARRATIVE: CASE EVENT DATE: 20160411
